FAERS Safety Report 9292492 (Version 2)
Quarter: 2014Q1

REPORT INFORMATION
  Report Type: Spontaneous
  Country: US (occurrence: None)
  Receive Date: 20121212
  Receipt Date: 20130314
  Transmission Date: 20141002
  Serious: No
  Sender: FDA-Public Use
  Company Number: 1210USA008786

PATIENT
  Age: 55 Year
  Sex: Female
  Weight: 72.1 kg

DRUGS (12)
  1. VICTRELIS [Suspect]
     Indication: HEPATITIS C
     Route: 048
     Dates: start: 20121005
  2. RIBAVIRIN [Suspect]
     Dosage: AM
     Dates: start: 20120907
  3. PEGASYS (PEGINTERFERON ALFA-2A) [Suspect]
     Dates: start: 20120907
  4. PREMARIN (ESTROGENS, CONJUGATED) [Concomitant]
  5. OPANA (OXYMORPHONE HYDROCHLORIDE) [Concomitant]
  6. OXYCODONE (OXYCODONE) [Concomitant]
  7. TRAMADOL HYDROCHLORIDE (TRAMADOL HYDROCHLORIDE) [Concomitant]
  8. CITALOPRAM (CITALOPRAM) [Concomitant]
  9. OMEGA-3 MARINE TRIGLYCERIDES (OMEGA-3 MARINE TRIGLYCERIDES) [Concomitant]
  10. CALCIUM (CALCIUM UNSPECIFIED) [Concomitant]
  11. VITAMINS (VITAMINS UNSPECIFIED) [Concomitant]
  12. ASPIRIN (ASPIRIN) [Concomitant]

REACTIONS (4)
  - Hypoaesthesia [None]
  - Vision blurred [None]
  - Headache [None]
  - Vertigo [None]
